FAERS Safety Report 5211742-2 (Version None)
Quarter: 2007Q1

REPORT INFORMATION
  Report Type: 
  Country: None (occurrence: None)
  Receive Date: 20070116
  Receipt Date: 20061230
  Transmission Date: 20070707
  Serious: Yes (Life-Threatening)
  Sender: FDA-Public Use
  Company Number: POMP-10915

PATIENT
  Age: 43 Year
  Sex: Female
  Weight: 52 kg

DRUGS (7)
  1. MYOZYME [Suspect]
     Indication: GLYCOGEN STORAGE DISEASE TYPE II
     Dosage: 20 MG/KG Q2WKS IV
     Route: 042
     Dates: start: 20060511
  2. SUPRASTIN [Suspect]
     Indication: PREMEDICATION
     Dates: start: 20061221, end: 20061221
  3. SUPRASTIN [Suspect]
     Indication: PREMEDICATION
     Dates: start: 20061201, end: 20061201
  4. TELFAST [Concomitant]
  5. CALCIUM [Concomitant]
  6. TELFAST [Concomitant]
  7. CALCIUM GLUCOMATE [Concomitant]

REACTIONS (14)
  - ABDOMINAL DISTENSION [None]
  - ANAPHYLACTIC REACTION [None]
  - CHEST PAIN [None]
  - DIZZINESS [None]
  - DRUG HYPERSENSITIVITY [None]
  - DYSPNOEA [None]
  - HYPERHIDROSIS [None]
  - HYPERTENSION [None]
  - MUSCULAR WEAKNESS [None]
  - PALLOR [None]
  - PERIPHERAL COLDNESS [None]
  - POOR PERIPHERAL CIRCULATION [None]
  - SKIN REACTION [None]
  - TACHYCARDIA [None]
